FAERS Safety Report 15529348 (Version 5)
Quarter: 2019Q2

REPORT INFORMATION
  Report Type: Spontaneous
  Country: JP (occurrence: JP)
  Receive Date: 20181018
  Receipt Date: 20190401
  Transmission Date: 20190711
  Serious: Yes (Death, Hospitalization, Other)
  Sender: FDA-Public Use
  Company Number: JP-JNJFOC-20181024379

PATIENT
  Age: 77 Year
  Sex: Male
  Weight: 50 kg

DRUGS (83)
  1. BENDAMUSTINE HYDROCHLORIDE. [Concomitant]
     Active Substance: BENDAMUSTINE HYDROCHLORIDE
     Route: 065
  2. FLUCONAZOLE. [Concomitant]
     Active Substance: FLUCONAZOLE
     Dosage: AFTER BREAKFAST
     Route: 048
     Dates: start: 20180116, end: 20180120
  3. MOHRUS [Concomitant]
     Active Substance: KETOPROFEN
     Route: 062
     Dates: start: 20180205, end: 20180205
  4. MOHRUS [Concomitant]
     Active Substance: KETOPROFEN
     Route: 062
     Dates: start: 20180529, end: 20180529
  5. IMBRUVICA [Suspect]
     Active Substance: IBRUTINIB
     Indication: MANTLE CELL LYMPHOMA
     Route: 048
     Dates: start: 20180115, end: 20180120
  6. FENTOS [Concomitant]
     Active Substance: FENTANYL
     Route: 062
     Dates: start: 20180121, end: 20180121
  7. FUROSEMIDE. [Concomitant]
     Active Substance: FUROSEMIDE
     Dosage: AFTER BREAKFAST
     Route: 048
     Dates: start: 20180121, end: 20180121
  8. FLUCONAZOLE. [Concomitant]
     Active Substance: FLUCONAZOLE
     Dosage: AFTER BREAKFAST
     Route: 048
     Dates: start: 20180423, end: 20180717
  9. IMBRUVICA [Suspect]
     Active Substance: IBRUTINIB
     Indication: MANTLE CELL LYMPHOMA
     Dosage: AFTER BREAKFAST
     Route: 048
     Dates: start: 20180129, end: 20180130
  10. MAGNESIUM OXIDE. [Concomitant]
     Active Substance: MAGNESIUM OXIDE
     Route: 048
     Dates: start: 20180122, end: 20180128
  11. FENTOS [Concomitant]
     Active Substance: FENTANYL
     Route: 062
     Dates: start: 20180115, end: 20180117
  12. FENTOS [Concomitant]
     Active Substance: FENTANYL
     Route: 062
     Dates: start: 20180723, end: 20180723
  13. FENTOS [Concomitant]
     Active Substance: FENTANYL
     Route: 062
     Dates: start: 20180129, end: 20180129
  14. FENTOS [Concomitant]
     Active Substance: FENTANYL
     Route: 062
     Dates: start: 20180720, end: 20180720
  15. FUROSEMIDE. [Concomitant]
     Active Substance: FUROSEMIDE
     Dosage: AFTER BREAKFAST
     Route: 048
     Dates: start: 20180122, end: 20180125
  16. FLUCONAZOLE. [Concomitant]
     Active Substance: FLUCONAZOLE
     Dosage: AFTER BREAKFAST
     Route: 048
     Dates: start: 20180121, end: 20180121
  17. LEVOFLOXACIN HEMIHYDRATE [Concomitant]
     Active Substance: LEVOFLOXACIN
     Dosage: AFTER BREAKFAST
     Route: 048
     Dates: start: 20180116, end: 20180120
  18. MOHRUS [Concomitant]
     Active Substance: KETOPROFEN
     Route: 062
     Dates: start: 20180116, end: 20180116
  19. PREDONINE [Concomitant]
     Active Substance: PREDNISOLONE
     Route: 048
     Dates: start: 20180126, end: 20180128
  20. PREDONINE [Concomitant]
     Active Substance: PREDNISOLONE
     Route: 048
     Dates: start: 20180129, end: 20180130
  21. TAKECAB [Concomitant]
     Active Substance: VONOPRAZAN FUMURATE
     Dosage: AFTER BREAKFAST
     Route: 048
     Dates: start: 20180226, end: 20180717
  22. NERIZA [Concomitant]
     Route: 061
     Dates: start: 20180226, end: 20180422
  23. MS ONSHIPPU [Concomitant]
     Active Substance: CAMPHOR\CAPSICUM\METHYL SALICYLATE
     Dosage: 1 TO 2 TIMES
     Route: 062
     Dates: start: 20180620, end: 20180620
  24. ALDACTONE A [Concomitant]
     Active Substance: SPIRONOLACTONE
     Route: 048
     Dates: start: 20180711, end: 20180717
  25. IMBRUVICA [Suspect]
     Active Substance: IBRUTINIB
     Indication: MANTLE CELL LYMPHOMA
     Dosage: AFTER BREAKFAST
     Route: 048
     Dates: start: 20180626, end: 20180717
  26. MAGNESIUM OXIDE. [Concomitant]
     Active Substance: MAGNESIUM OXIDE
     Route: 048
     Dates: start: 20180121, end: 20180121
  27. RITUXIMAB. [Concomitant]
     Active Substance: RITUXIMAB
     Indication: MANTLE CELL LYMPHOMA
     Route: 065
  28. LYRICA [Concomitant]
     Active Substance: PREGABALIN
     Dosage: AFTER BREAKFAST,AFTER DINNER
     Route: 048
     Dates: start: 20180115, end: 20180115
  29. FENTOS [Concomitant]
     Active Substance: FENTANYL
     Route: 062
     Dates: start: 20180118, end: 20180118
  30. FENTOS [Concomitant]
     Active Substance: FENTANYL
     Route: 062
     Dates: start: 20180122, end: 20180124
  31. FENTOS [Concomitant]
     Active Substance: FENTANYL
     Route: 062
     Dates: start: 20180719, end: 20180719
  32. FUROSEMIDE. [Concomitant]
     Active Substance: FUROSEMIDE
     Dosage: AFTER BREAKFAST
     Route: 048
     Dates: start: 20180115, end: 20180120
  33. ALOSENN [ACHILLEA MILLEFOLIUM;RUBIA TINCTORUM ROOT TINCTURE;SENNA ALEX [Concomitant]
     Active Substance: ACHILLEA MILLEFOLIUM\RUBIA TINCTURE\SENNA FRUIT EXTRACT\SENNA LEAF\TARAXACUM OFFICINALE
     Route: 048
     Dates: start: 20180118, end: 20180120
  34. ALOSENN [ACHILLEA MILLEFOLIUM;RUBIA TINCTORUM ROOT TINCTURE;SENNA ALEX [Concomitant]
     Active Substance: ACHILLEA MILLEFOLIUM\RUBIA TINCTURE\SENNA FRUIT EXTRACT\SENNA LEAF\TARAXACUM OFFICINALE
     Route: 048
     Dates: start: 20180122, end: 20180128
  35. GENINAX [Concomitant]
     Active Substance: GARENOXACIN MESYLATE
     Route: 048
     Dates: start: 20180205, end: 20180318
  36. HEPARINOID [Concomitant]
     Active Substance: CHONDROITIN SULFATE (BOVINE)
     Route: 061
     Dates: start: 20180319, end: 20180319
  37. CARBAZOCHROME SODIUM SULFONATE [Concomitant]
     Active Substance: CARBAZOCHROME SODIUM SULFONATE
     Route: 048
     Dates: start: 20180529, end: 20180717
  38. FUROSEMIDE. [Concomitant]
     Active Substance: FUROSEMIDE
     Route: 048
     Dates: start: 20180711, end: 20180717
  39. LOXOPROFEN [Concomitant]
     Active Substance: LOXOPROFEN
     Indication: PYREXIA
     Route: 048
  40. IMBRUVICA [Suspect]
     Active Substance: IBRUTINIB
     Indication: MANTLE CELL LYMPHOMA
     Dosage: AFTER BREAKFAST
     Route: 048
     Dates: start: 20180121, end: 20180121
  41. IMBRUVICA [Suspect]
     Active Substance: IBRUTINIB
     Indication: MANTLE CELL LYMPHOMA
     Route: 048
     Dates: start: 20180529, end: 20180615
  42. FENTOS [Concomitant]
     Active Substance: FENTANYL
     Route: 062
     Dates: start: 20180126, end: 20180128
  43. FENTOS [Concomitant]
     Active Substance: FENTANYL
     Route: 062
     Dates: start: 20180130, end: 20180318
  44. FENTOS [Concomitant]
     Active Substance: FENTANYL
     Route: 062
     Dates: start: 20180721, end: 20180721
  45. LEVOFLOXACIN HEMIHYDRATE [Concomitant]
     Active Substance: LEVOFLOXACIN
     Route: 048
     Dates: start: 20180121, end: 20180121
  46. LEVOFLOXACIN HEMIHYDRATE [Concomitant]
     Active Substance: LEVOFLOXACIN
     Route: 048
     Dates: start: 20180131, end: 20180204
  47. MOHRUS [Concomitant]
     Active Substance: KETOPROFEN
     Route: 062
     Dates: start: 20180126, end: 20180126
  48. MOHRUS [Concomitant]
     Active Substance: KETOPROFEN
     Route: 062
     Dates: start: 20180319, end: 20180319
  49. IMBRUVICA [Suspect]
     Active Substance: IBRUTINIB
     Indication: MANTLE CELL LYMPHOMA
     Route: 048
     Dates: start: 20180131, end: 20180318
  50. FENTOS [Concomitant]
     Active Substance: FENTANYL
     Route: 062
     Dates: start: 20180722, end: 20180722
  51. LEVOFLOXACIN HEMIHYDRATE [Concomitant]
     Active Substance: LEVOFLOXACIN
     Route: 048
     Dates: start: 20180122, end: 20180128
  52. HEPARINOID [Concomitant]
     Active Substance: CHONDROITIN SULFATE (BOVINE)
     Route: 061
     Dates: start: 20180219, end: 20180219
  53. BESOFTEN [Concomitant]
     Active Substance: PENTOSAN POLYSULFATE SODIUM
     Route: 061
     Dates: start: 20180319, end: 20180319
  54. MS ONSHIPPU [Concomitant]
     Active Substance: CAMPHOR\CAPSICUM\METHYL SALICYLATE
     Dosage: 1 TO 2 TIMES
     Route: 062
     Dates: start: 20180326, end: 20180326
  55. TRANEXAMIC ACID. [Concomitant]
     Active Substance: TRANEXAMIC ACID
     Dosage: AFTER EACH MEAL
     Route: 048
     Dates: start: 20180529, end: 20180717
  56. IMBRUVICA [Suspect]
     Active Substance: IBRUTINIB
     Indication: MANTLE CELL LYMPHOMA
     Dosage: AFTER BREAKFAST
     Route: 048
     Dates: start: 20180122, end: 20180128
  57. IMBRUVICA [Suspect]
     Active Substance: IBRUTINIB
     Indication: MANTLE CELL LYMPHOMA
     Dosage: AFTER BREAKFAST
     Route: 048
     Dates: start: 20180423, end: 20180514
  58. FENTOS [Concomitant]
     Active Substance: FENTANYL
     Route: 062
     Dates: start: 20180723, end: 20180723
  59. FLUCONAZOLE. [Concomitant]
     Active Substance: FLUCONAZOLE
     Dosage: AFTER BREAKFAST
     Route: 048
     Dates: start: 20180129, end: 20180130
  60. FLUCONAZOLE. [Concomitant]
     Active Substance: FLUCONAZOLE
     Dosage: AFTER BREAKFAST
     Route: 048
     Dates: start: 20180131, end: 20180204
  61. ALOSENN [ACHILLEA MILLEFOLIUM;RUBIA TINCTORUM ROOT TINCTURE;SENNA ALEX [Concomitant]
     Active Substance: ACHILLEA MILLEFOLIUM\RUBIA TINCTURE\SENNA FRUIT EXTRACT\SENNA LEAF\TARAXACUM OFFICINALE
     Route: 048
     Dates: start: 20180131, end: 20180218
  62. GENINAX [Concomitant]
     Active Substance: GARENOXACIN MESYLATE
     Route: 048
     Dates: start: 20180423, end: 20180528
  63. BESOFTEN [Concomitant]
     Active Substance: PENTOSAN POLYSULFATE SODIUM
     Route: 061
     Dates: start: 20180219, end: 20180219
  64. JUVELA N [Concomitant]
     Active Substance: TOCOPHERYL NICOTINATE, D-.ALPHA.
     Route: 048
     Dates: start: 20180226, end: 20180523
  65. SAMSCA [Concomitant]
     Active Substance: TOLVAPTAN
     Route: 048
     Dates: start: 20180423, end: 20180528
  66. ALDACTONE A [Concomitant]
     Active Substance: SPIRONOLACTONE
     Route: 048
     Dates: start: 20180423, end: 20180528
  67. TERBINAFINE HYDROCHLORIDE. [Concomitant]
     Active Substance: TERBINAFINE HYDROCHLORIDE
     Route: 061
     Dates: start: 20180628, end: 20180628
  68. ABSTRAL [Concomitant]
     Active Substance: FENTANYL CITRATE
     Route: 048
     Dates: start: 20180720, end: 20180723
  69. IMBRUVICA [Suspect]
     Active Substance: IBRUTINIB
     Indication: MANTLE CELL LYMPHOMA
     Route: 048
     Dates: start: 20180319, end: 20180422
  70. MAGNESIUM OXIDE. [Concomitant]
     Active Substance: MAGNESIUM OXIDE
     Route: 048
     Dates: start: 20180118, end: 20180120
  71. MAGNESIUM OXIDE. [Concomitant]
     Active Substance: MAGNESIUM OXIDE
     Route: 048
     Dates: start: 20180129, end: 20180130
  72. MAGNESIUM OXIDE. [Concomitant]
     Active Substance: MAGNESIUM OXIDE
     Route: 048
     Dates: start: 20180131, end: 20180218
  73. FENTOS [Concomitant]
     Active Substance: FENTANYL
     Route: 062
     Dates: start: 20180119, end: 20180120
  74. FENTOS [Concomitant]
     Active Substance: FENTANYL
     Route: 062
     Dates: start: 20180326, end: 20180422
  75. FLUCONAZOLE. [Concomitant]
     Active Substance: FLUCONAZOLE
     Dosage: AFTER BREAKFAST
     Route: 048
     Dates: start: 20180122, end: 20180128
  76. LEVOFLOXACIN HEMIHYDRATE [Concomitant]
     Active Substance: LEVOFLOXACIN
     Route: 048
     Dates: start: 20180129, end: 20180130
  77. MOHRUS [Concomitant]
     Active Substance: KETOPROFEN
     Route: 062
     Dates: start: 20180218, end: 20180218
  78. ALOSENN [ACHILLEA MILLEFOLIUM;RUBIA TINCTORUM ROOT TINCTURE;SENNA ALEX [Concomitant]
     Active Substance: ACHILLEA MILLEFOLIUM\RUBIA TINCTURE\SENNA FRUIT EXTRACT\SENNA LEAF\TARAXACUM OFFICINALE
     Route: 048
     Dates: start: 20180121, end: 20180121
  79. ALOSENN [ACHILLEA MILLEFOLIUM;RUBIA TINCTORUM ROOT TINCTURE;SENNA ALEX [Concomitant]
     Active Substance: ACHILLEA MILLEFOLIUM\RUBIA TINCTURE\SENNA FRUIT EXTRACT\SENNA LEAF\TARAXACUM OFFICINALE
     Route: 048
     Dates: start: 20180129, end: 20180130
  80. PREDONINE [Concomitant]
     Active Substance: PREDNISOLONE
     Route: 048
     Dates: start: 20180131, end: 20180717
  81. GENINAX [Concomitant]
     Active Substance: GARENOXACIN MESYLATE
     Route: 048
     Dates: start: 20180620, end: 20180626
  82. FLORID [Concomitant]
     Active Substance: MICONAZOLE
     Route: 048
     Dates: start: 20180205, end: 20180318
  83. SAMSCA [Concomitant]
     Active Substance: TOLVAPTAN
     Dosage: AFTER BREAKFAST
     Route: 048
     Dates: start: 20180711, end: 20180717

REACTIONS (5)
  - Pneumothorax [Recovered/Resolved]
  - Mantle cell lymphoma refractory [Fatal]
  - Interstitial lung disease [Not Recovered/Not Resolved]
  - Pneumomediastinum [Recovered/Resolved]
  - Pulmonary fibrosis [Unknown]

NARRATIVE: CASE EVENT DATE: 20180129
